FAERS Safety Report 4721429-8 (Version None)
Quarter: 2005Q3

REPORT INFORMATION
  Report Type: 
  Country: None (occurrence: None)
  Receive Date: 20050721
  Receipt Date: 20040830
  Transmission Date: 20060218
  Serious: No
  Sender: FDA-Public Use
  Company Number: US-BRISTOL-MYERS SQUIBB COMPANY-12687786

PATIENT
  Age: 76 Year
  Sex: Male
  Weight: 73 kg

DRUGS (7)
  1. COUMADIN [Suspect]
     Indication: CEREBROVASCULAR ACCIDENT
     Dosage: THERAPY INITIATED APPROXIMATELY 2 YEARS AGO;DECREASED TO 4MG AND THEN INCREASED TO 4.5MG
     Route: 048
  2. COUMADIN [Suspect]
     Indication: CARDIAC DISORDER
     Dosage: THERAPY INITIATED APPROXIMATELY 2 YEARS AGO;DECREASED TO 4MG AND THEN INCREASED TO 4.5MG
     Route: 048
  3. VIOXX [Concomitant]
  4. FOSAMAX [Concomitant]
  5. TYLENOL [Concomitant]
  6. CALCIUM GLUCONATE [Concomitant]
  7. GLUCOSAMINE [Concomitant]

REACTIONS (1)
  - PROTHROMBIN TIME ABNORMAL [None]
